FAERS Safety Report 14247458 (Version 1)
Quarter: 2017Q4

REPORT INFORMATION
  Report Type: Spontaneous
  Country: US (occurrence: US)
  Receive Date: 20171204
  Receipt Date: 20171204
  Transmission Date: 20180321
  Serious: Yes (Other)
  Sender: FDA-Public Use
  Company Number: US-LPDUSPRD-20171633

PATIENT
  Sex: Female

DRUGS (2)
  1. PROGESTERONE INJECTION (0750-01) [Suspect]
     Active Substance: PROGESTERONE
     Dosage: UNKNOWN
     Route: 065
  2. LUMACAFTOR/IVACAFTOR [Suspect]
     Active Substance: IVACAFTOR\LUMACAFTOR
     Dosage: UNKNOWN
     Route: 065

REACTIONS (3)
  - Haemoptysis [Unknown]
  - Drug effect decreased [Unknown]
  - Drug interaction [Unknown]
